FAERS Safety Report 25187076 (Version 2)
Quarter: 2025Q2

REPORT INFORMATION
  Report Type: Spontaneous
  Country: FR (occurrence: FR)
  Receive Date: 20250411
  Receipt Date: 20250418
  Transmission Date: 20250717
  Serious: Yes (Other)
  Sender: ROCHE
  Company Number: None

PATIENT
  Age: 51 Year
  Sex: Female
  Weight: 89 kg

DRUGS (10)
  1. XOLAIR [Suspect]
     Active Substance: OMALIZUMAB
     Indication: Urticaria chronic
     Dosage: ON AN UNKNOWN DATE IN MAR-2025, SHE RECEIVED MOST RECENT DOSE.
     Route: 058
     Dates: start: 202306, end: 202503
  2. LEVOTHYROXINE SODIUM [Suspect]
     Active Substance: LEVOTHYROXINE SODIUM
     Indication: Hypothyroidism
     Dosage: 115 UG, QD
     Route: 048
  3. FLECAINIDE [Suspect]
     Active Substance: FLECAINIDE
     Indication: Atrial fibrillation
     Dosage: 1 DOSAGE FORM, QD (SCORED TABLET)
     Route: 048
  4. COLPRONE [Suspect]
     Active Substance: MEDROGESTONE
     Indication: Contraception
     Dosage: 2 DOSAGE FORM, QD
     Route: 048
  5. POTASSIUM CHLORIDE [Suspect]
     Active Substance: POTASSIUM CHLORIDE
     Indication: Hypokalaemia
     Dosage: 1 DOSAGE FORM, QD
     Route: 048
  6. BUDESONIDE\FORMOTEROL FUMARATE DIHYDRATE [Suspect]
     Active Substance: BUDESONIDE\FORMOTEROL FUMARATE DIHYDRATE
     Indication: Respiratory disorder
     Dosage: 2 DOSAGE FORM, QD
     Route: 055
  7. TRIMEPRAZINE [Suspect]
     Active Substance: TRIMEPRAZINE
     Indication: Insomnia
     Dosage: 10 MG, QD
     Route: 048
  8. CANNABIDIOL [Suspect]
     Active Substance: CANNABIDIOL
     Indication: Pain
     Route: 048
  9. EBASTINE [Suspect]
     Active Substance: EBASTINE
     Indication: Urticaria chronic
     Dosage: 2 DOSAGE FORM, QD
     Route: 048
  10. ALBUTEROL [Suspect]
     Active Substance: ALBUTEROL
     Indication: Respiratory disorder
     Dosage: 6 DOSAGE FORM, QD
     Route: 055

REACTIONS (1)
  - Stress fracture [Not Recovered/Not Resolved]

NARRATIVE: CASE EVENT DATE: 20240801
